FAERS Safety Report 10477493 (Version 2)
Quarter: 2014Q4

REPORT INFORMATION
  Report Type: Spontaneous
  Country: FR (occurrence: None)
  Receive Date: 20140923
  Receipt Date: 20141209
  Transmission Date: 20150528
  Serious: Yes (Life-Threatening)
  Sender: FDA-Public Use
  Company Number: FK201403741

PATIENT
  Age: 63 Year
  Sex: Female

DRUGS (3)
  1. ULTIVA [Suspect]
     Active Substance: REMIFENTANIL HYDROCHLORIDE
     Indication: INDUCTION OF ANAESTHESIA
     Route: 042
     Dates: start: 20140821, end: 20140821
  2. PROPOFOL. [Suspect]
     Active Substance: PROPOFOL
     Indication: INDUCTION OF ANAESTHESIA
     Route: 042
     Dates: start: 20140821, end: 20140821
  3. ESMERON (ROCURONIUM BROMIDE) (ROCURONIUM BROMIDE) [Suspect]
     Active Substance: ROCURONIUM BROMIDE
     Indication: INDUCTION OF ANAESTHESIA
     Dates: start: 20140821, end: 20140821

REACTIONS (3)
  - Acute kidney injury [None]
  - Acute pulmonary oedema [None]
  - Anaphylactic shock [None]

NARRATIVE: CASE EVENT DATE: 20140821
